FAERS Safety Report 11783585 (Version 3)
Quarter: 2016Q2

REPORT INFORMATION
  Report Type: Spontaneous
  Country: GB (occurrence: GB)
  Receive Date: 20151127
  Receipt Date: 20160415
  Transmission Date: 20160815
  Serious: Yes (Other)
  Sender: FDA-Public Use
  Company Number: GB-AMGEN-GBRSP2015125084

PATIENT
  Sex: Female

DRUGS (2)
  1. XGEVA [Suspect]
     Active Substance: DENOSUMAB
     Indication: PRODUCT USED FOR UNKNOWN INDICATION
     Dosage: 120 MG, Q4WK
     Route: 065
  2. CAPECITABINE. [Concomitant]
     Active Substance: CAPECITABINE
     Dosage: UNK

REACTIONS (11)
  - Hepatic neoplasm [Unknown]
  - Diarrhoea [Recovered/Resolved]
  - Genital ulceration [Unknown]
  - Neuropathy peripheral [Unknown]
  - Nausea [Unknown]
  - Constipation [Unknown]
  - Hypoaesthesia [Unknown]
  - Weight decreased [Unknown]
  - Dry skin [Unknown]
  - Vomiting [Recovered/Resolved]
  - Fatigue [Unknown]
